FAERS Safety Report 16697861 (Version 1)
Quarter: 2019Q3

REPORT INFORMATION
  Report Type: Report from Study
  Country: GB (occurrence: GB)
  Receive Date: 20190813
  Receipt Date: 20190813
  Transmission Date: 20191004
  Serious: Yes (Hospitalization)
  Sender: FDA-Public Use
  Company Number: PHHY2018GB008980

PATIENT
  Sex: Female

DRUGS (1)
  1. COSENTYX [Suspect]
     Active Substance: SECUKINUMAB
     Indication: PSORIASIS
     Dosage: 300 MG, QMO (2 PENS)
     Route: 058
     Dates: start: 20170830

REACTIONS (8)
  - Hypersomnia [Unknown]
  - Pain [Unknown]
  - Fall [Unknown]
  - Migraine [Unknown]
  - Central nervous system infection [Unknown]
  - Tooth injury [Unknown]
  - Psoriasis [Not Recovered/Not Resolved]
  - Dysarthria [Unknown]
